FAERS Safety Report 20574065 (Version 1)
Quarter: 2022Q1

REPORT INFORMATION
  Report Type: Spontaneous
  Country: US (occurrence: US)
  Receive Date: 20220309
  Receipt Date: 20220309
  Transmission Date: 20220423
  Serious: Yes (Death, Other)
  Sender: FDA-Public Use
  Company Number: US-REGENERON PHARMACEUTICALS, INC.-2022-34769

PATIENT

DRUGS (1)
  1. LIBTAYO [Suspect]
     Active Substance: CEMIPLIMAB-RWLC
     Indication: Metastatic squamous cell carcinoma
     Dosage: 350 MG, Q3W
     Route: 042
     Dates: start: 20220106, end: 20220224

REACTIONS (3)
  - Death [Fatal]
  - Delirium [Unknown]
  - Dehydration [Unknown]

NARRATIVE: CASE EVENT DATE: 20220217
